FAERS Safety Report 8998115 (Version 1)
Quarter: 2013Q1

REPORT INFORMATION
  Report Type: Spontaneous
  Country: US (occurrence: US)
  Receive Date: 20130104
  Receipt Date: 20130104
  Transmission Date: 20140127
  Serious: Yes (Hospitalization)
  Sender: FDA-Public Use
  Company Number: US-B.I. PHARMACEUTICALS,INC./RIDGEFIELD-2012-BI-04638BP

PATIENT
  Age: 60 None
  Sex: Female
  Weight: 72 kg

DRUGS (9)
  1. SPIRIVA [Suspect]
     Indication: CHRONIC OBSTRUCTIVE PULMONARY DISEASE
     Dosage: 18 MCG
     Route: 055
     Dates: start: 200911
  2. PREMARIN [Concomitant]
     Indication: HYSTERECTOMY
  3. PROTONIX [Concomitant]
     Indication: HIATUS HERNIA
     Dosage: 40 MG
     Route: 048
  4. SYMBICORT [Concomitant]
     Indication: DYSPNOEA
     Dosage: 2 PUF
     Route: 055
  5. AMITRIPTYLIN [Concomitant]
  6. ALBUTEROL IPRATROPIUM [Concomitant]
     Indication: DYSPNOEA
  7. LORTAB [Concomitant]
     Indication: PAIN
  8. LYRICA [Concomitant]
     Indication: FIBROMYALGIA
     Dosage: 300 MG
  9. XANAX [Concomitant]
     Indication: ANXIETY

REACTIONS (9)
  - Pneumonia [Recovered/Resolved]
  - Pneumonia [Recovered/Resolved]
  - Pneumonia [Recovered/Resolved]
  - Pneumonia [Recovered/Resolved]
  - Device dislocation [Recovered/Resolved]
  - Dyspnoea [Recovered/Resolved]
  - Wheezing [Recovered/Resolved]
  - Abdominal pain upper [Recovered/Resolved]
  - Asthenia [Recovered/Resolved]
